FAERS Safety Report 4831815-3 (Version None)
Quarter: 2005Q4

REPORT INFORMATION
  Report Type: 
  Country: None (occurrence: None)
  Receive Date: 20051118
  Receipt Date: 20050923
  Transmission Date: 20060501
  Serious: Yes (Other)
  Sender: FDA-Public Use
  Company Number: DE-BRISTOL-MYERS SQUIBB COMPANY-13137864

PATIENT
  Age: 30 Year
  Sex: Female

DRUGS (3)
  1. VIDEX [Suspect]
     Dates: start: 19990901, end: 20000501
  2. ZERIT [Suspect]
     Dates: start: 19990901, end: 20000501
  3. NEVIRAPINE [Suspect]
     Dates: start: 20000201, end: 20000501

REACTIONS (3)
  - BLOOD CHOLESTEROL INCREASED [None]
  - HYPERLACTACIDAEMIA [None]
  - LIPODYSTROPHY ACQUIRED [None]
